FAERS Safety Report 9291078 (Version 3)
Quarter: 2013Q1

REPORT INFORMATION
  Report Type: Spontaneous
  Country: US (occurrence: None)
  Receive Date: 20121017
  Receipt Date: 20130228
  Transmission Date: 20140127
  Serious: Yes (Other)
  Sender: FDA-Public Use
  Company Number: AUR-APL-2012-04261

PATIENT
  Age: 54 Year
  Sex: Female
  Weight: 51.71 kg

DRUGS (1)
  1. TERBINAFINE [Suspect]
     Indication: ONYCHOMYCOSIS
     Dosage: (250 MG, 1 IN 1 D)
     Route: 048
     Dates: start: 201208, end: 201208

REACTIONS (20)
  - Ageusia [None]
  - Dysgeusia [None]
  - Asthenia [None]
  - Impaired work ability [None]
  - Malaise [None]
  - Weight decreased [None]
  - Tongue coated [None]
  - Depression [None]
  - Nausea [None]
  - Dizziness [None]
  - Hunger [None]
  - Frustration [None]
  - Retching [None]
  - Vomiting [None]
  - Activities of daily living impaired [None]
  - Fatigue [None]
  - Tension [None]
  - Mood altered [None]
  - Asthenia [None]
  - Hypophagia [None]
